FAERS Safety Report 4554638-1 (Version None)
Quarter: 2005Q1

REPORT INFORMATION
  Report Type: 
  Country: None (occurrence: None)
  Receive Date: 20050107
  Receipt Date: 20041207
  Transmission Date: 20050727
  Serious: Yes (Other)
  Sender: FDA-Public Use
  Company Number: 601590

PATIENT
  Age: 29 Year
  Sex: Male
  Weight: 76.2 kg

DRUGS (3)
  1. ADVATE (ANTIHEMOPHILIC FACTOR (RECOMBINANT), PLASMA/ ALBUMIN FREE METH [Suspect]
     Indication: FACTOR VIII DEFICIENCY
     Dosage: 2000 IU; ONCE; INTRAVENOUS
     Route: 042
     Dates: start: 20040917, end: 20040917
  2. ADVATE (ANTIHEMOPHILIC FACTOR (RECOMBINANT), PLASMA/ ALBUMIN FREE METH [Suspect]
     Indication: PROPHYLAXIS
     Dosage: 2000 IU; ONCE; INTRAVENOUS
     Route: 042
     Dates: start: 20040917, end: 20040917
  3. ANTIVIRALS FOR SYSTEMIC USE [Concomitant]

REACTIONS (3)
  - FEELING ABNORMAL [None]
  - HYPERSENSITIVITY [None]
  - INFUSION RELATED REACTION [None]
